FAERS Safety Report 4269904-7 (Version None)
Quarter: 2004Q1

REPORT INFORMATION
  Report Type: 
  Country: None (occurrence: None)
  Receive Date: 20040112
  Receipt Date: 20040112
  Transmission Date: 20041129
  Serious: Yes (Hospitalization)
  Sender: FDA-Public Use
  Company Number: None

PATIENT
  Age: 60 Year
  Sex: Male

DRUGS (8)
  1. PHENYTOIN [Suspect]
     Indication: CONVULSION
     Dosage: 300 MG QHS
     Dates: start: 19970401
  2. ALBUTEROL [Concomitant]
  3. ASPIRIN [Concomitant]
  4. ALLEGRA [Concomitant]
  5. HYDROXYZINE [Concomitant]
  6. SERTRALINE HCL [Concomitant]
  7. RANITIDINE [Concomitant]
  8. FOSINOPRIL SODIUM [Concomitant]

REACTIONS (3)
  - FALL [None]
  - NAUSEA [None]
  - VOMITING [None]
